FAERS Safety Report 16363634 (Version 1)
Quarter: 2019Q2

REPORT INFORMATION
  Report Type: Spontaneous
  Country: FR (occurrence: FR)
  Receive Date: 20190528
  Receipt Date: 20190528
  Transmission Date: 20190711
  Serious: Yes (Hospitalization)
  Sender: FDA-Public Use
  Company Number: FR-MYLANLABS-2019M1048550

PATIENT
  Age: 87 Year
  Sex: Female

DRUGS (2)
  1. BISOCE [Suspect]
     Active Substance: BISOPROLOL
     Indication: TACHYCARDIA
     Dosage: 1.25 MILLIGRAM, QD
     Route: 048
     Dates: start: 20180903, end: 20180924
  2. PROCORALAN [Suspect]
     Active Substance: IVABRADINE
     Indication: TACHYCARDIA
     Dosage: 0.5 MILLIGRAM, QD
     Route: 048
     Dates: start: 20180903, end: 20180924

REACTIONS (4)
  - Hepatitis [Not Recovered/Not Resolved]
  - Proteinuria [Not Recovered/Not Resolved]
  - Skin necrosis [Not Recovered/Not Resolved]
  - Blister [Not Recovered/Not Resolved]

NARRATIVE: CASE EVENT DATE: 20180920
